FAERS Safety Report 5340997-9 (Version None)
Quarter: 2007Q2

REPORT INFORMATION
  Report Type: 
  Country: None (occurrence: None)
  Receive Date: 20070405
  Receipt Date: 20070124
  Transmission Date: 20071010
  Serious: No
  Sender: FDA-Public Use
  Company Number: US200701004812

PATIENT
  Age: 41 Year
  Sex: Female

DRUGS (4)
  1. CYMBALTA [Suspect]
     Indication: PAIN
     Dosage: 60 NG, UNK, UNK;  30 MG, UNK, UNK
     Dates: start: 20050101, end: 20070113
  2. XANAX [Concomitant]
  3. NASONEX [Concomitant]
  4. FIORICET [Concomitant]

REACTIONS (8)
  - DISTURBANCE IN ATTENTION [None]
  - DIZZINESS [None]
  - DRUG WITHDRAWAL SYNDROME [None]
  - INFLUENZA [None]
  - MALAISE [None]
  - MIGRAINE [None]
  - NAUSEA [None]
  - VERTIGO [None]
